FAERS Safety Report 5035957-1 (Version None)
Quarter: 2006Q2

REPORT INFORMATION
  Report Type: 
  Country: None (occurrence: None)
  Receive Date: 20060526
  Receipt Date: 20060324
  Transmission Date: 20061013
  Serious: Yes (Other)
  Sender: FDA-Public Use
  Company Number: WAES 0603USA03989

PATIENT
  Age: 50 Year
  Sex: Female

DRUGS (2)
  1. VYTORIN [Suspect]
     Indication: HYPERCHOLESTEROLAEMIA
     Dosage: PO
     Route: 048
     Dates: start: 20050401, end: 20051201
  2. NITROFURANTOIN [Concomitant]

REACTIONS (4)
  - DYSPNOEA [None]
  - NAUSEA [None]
  - PRURITUS [None]
  - URTICARIA [None]
